FAERS Safety Report 6997329-X (Version None)
Quarter: 2010Q3

REPORT INFORMATION
  Report Type: 
  Country: None (occurrence: None)
  Receive Date: 20100918
  Receipt Date: 20091117
  Transmission Date: 20110219
  Serious: Yes (Other)
  Sender: FDA-Public Use
  Company Number: US-WYE-H11266309

PATIENT
  Sex: Female
  Weight: 54.48 kg

DRUGS (2)
  1. PRISTIQ [Suspect]
     Indication: MAJOR DEPRESSION
     Route: 048
     Dates: start: 20090914, end: 20090918
  2. DIOVAN [Concomitant]
     Indication: HYPERTENSION

REACTIONS (2)
  - CONDITION AGGRAVATED [None]
  - HYPERTENSION [None]
